FAERS Safety Report 8817348 (Version 8)
Quarter: 2014Q1

REPORT INFORMATION
  Report Type: Spontaneous
  Country: US (occurrence: US)
  Receive Date: 20121004
  Receipt Date: 20140123
  Transmission Date: 20141002
  Serious: Yes (Hospitalization, Disabling, Other)
  Sender: FDA-Public Use
  Company Number: US-009507513-1205USA00977

PATIENT
  Sex: Female

DRUGS (6)
  1. FOSAMAX [Suspect]
     Indication: OSTEOPOROSIS
     Dosage: 70 MG, QW
     Route: 048
     Dates: start: 20040601, end: 201004
  2. FOSAMAX PLUS D [Suspect]
     Indication: OSTEOPOROSIS
     Route: 048
     Dates: start: 2004, end: 201004
  3. FOSAMAX [Suspect]
     Indication: INJURY
     Dosage: UNK
     Route: 048
     Dates: start: 2004, end: 201004
  4. ALENDRONATE SODIUM [Suspect]
     Indication: INJURY
     Dosage: 70 MG, UNK
     Route: 048
     Dates: start: 20090428, end: 20100227
  5. VITAMIN D (UNSPECIFIED) [Concomitant]
     Dosage: 2000 IU, QD
     Route: 048
  6. CALCIUM (UNSPECIFIED) [Concomitant]
     Dosage: 1200 MG, QD
     Route: 048

REACTIONS (34)
  - Osteopetrosis [Unknown]
  - Chronic obstructive pulmonary disease [Unknown]
  - Emphysema [Unknown]
  - Spinal compression fracture [Unknown]
  - Insomnia [Unknown]
  - Intervertebral disc degeneration [Unknown]
  - Scoliosis [Unknown]
  - Lumbar spinal stenosis [Unknown]
  - Dyspnoea [Unknown]
  - Lumbar radiculopathy [Unknown]
  - Aortic arteriosclerosis [Unknown]
  - Bone density decreased [Unknown]
  - Compression fracture [Unknown]
  - Spinal column injury [Unknown]
  - Memory impairment [Unknown]
  - Eructation [Unknown]
  - Bronchitis [Unknown]
  - Hyperlipidaemia [Unknown]
  - Abnormal loss of weight [Unknown]
  - Device damage [Unknown]
  - Treatment noncompliance [Unknown]
  - Decubitus ulcer [Unknown]
  - Rhinitis allergic [Unknown]
  - Cervical myelopathy [Unknown]
  - Constipation [Unknown]
  - Arthralgia [Unknown]
  - Off label use [Unknown]
  - Femur fracture [Not Recovered/Not Resolved]
  - Open reduction of fracture [Not Recovered/Not Resolved]
  - Fall [Unknown]
  - Anaemia postoperative [Recovered/Resolved]
  - Leukocytosis [Unknown]
  - Transfusion [Recovered/Resolved]
  - Low turnover osteopathy [Not Recovered/Not Resolved]
